FAERS Safety Report 9753157 (Version 3)
Quarter: 2015Q3

REPORT INFORMATION
  Report Type: Spontaneous
  Country: US (occurrence: US)
  Receive Date: 20131213
  Receipt Date: 20150805
  Transmission Date: 20151125
  Serious: No
  Sender: FDA-Public Use
  Company Number: US-GILEAD-2010-0026438

PATIENT
  Age: 71 Year
  Sex: Female
  Weight: 75.75 kg

DRUGS (23)
  1. LASIX [Concomitant]
     Active Substance: FUROSEMIDE
     Dates: start: 20061109
  2. CARAFATE [Concomitant]
     Active Substance: SUCRALFATE
     Dates: start: 20091113
  3. CRESTOR [Concomitant]
     Active Substance: ROSUVASTATIN CALCIUM
     Dates: start: 20091207
  4. ACIDOPHOLUS [Concomitant]
     Dates: start: 20090122
  5. PRED [Concomitant]
     Active Substance: PREDNISONE
     Dates: start: 20090521
  6. FLONASE [Concomitant]
     Active Substance: FLUTICASONE PROPIONATE
     Dates: start: 20070823
  7. ALLEGRA [Concomitant]
     Active Substance: FEXOFENADINE HYDROCHLORIDE
     Dates: start: 20070823
  8. SPIRIVA [Concomitant]
     Active Substance: TIOTROPIUM BROMIDE MONOHYDRATE
     Dates: start: 20090416
  9. LETAIRIS [Suspect]
     Active Substance: AMBRISENTAN
     Indication: PULMONARY ARTERIAL HYPERTENSION
     Route: 048
     Dates: start: 20091117
  10. KETOCONAZOLE. [Concomitant]
     Active Substance: KETOCONAZOLE
     Dates: start: 20090122
  11. BROVANA [Concomitant]
     Active Substance: ARFORMOTEROL TARTRATE
     Dates: start: 20090625
  12. OXYGEN. [Concomitant]
     Active Substance: OXYGEN
     Dates: start: 20041107
  13. ZYFLO [Concomitant]
     Active Substance: ZILEUTON
     Dates: start: 20090416
  14. SALINE NASAL SPRAY [Concomitant]
     Active Substance: SODIUM CHLORIDE
     Dates: start: 20091218
  15. PREDNISONE. [Concomitant]
     Active Substance: PREDNISONE
     Dates: start: 20091113
  16. BIAXIN [Concomitant]
     Active Substance: CLARITHROMYCIN
     Dates: start: 20091113
  17. KAPIDEX [Concomitant]
     Active Substance: DEXLANSOPRAZOLE
     Dates: start: 20091113
  18. REGLAN [Concomitant]
     Active Substance: METOCLOPRAMIDE HYDROCHLORIDE
  19. CALTRATE PLUS VITAMIN D WITH MINERALS [Concomitant]
     Dates: start: 20070329
  20. VFEND [Concomitant]
     Active Substance: VORICONAZOLE
     Dates: start: 20091124
  21. VENTAVIS [Concomitant]
     Active Substance: ILOPROST
     Dates: start: 20091113
  22. TAMBOCOR [Concomitant]
     Active Substance: FLECAINIDE ACETATE
     Dates: start: 20090226
  23. POTASSIUM CHLORIDE. [Concomitant]
     Active Substance: POTASSIUM CHLORIDE
     Dates: start: 20070607

REACTIONS (4)
  - Blood pressure decreased [Unknown]
  - Tinnitus [Unknown]
  - Oedema peripheral [Unknown]
  - Bronchitis [Unknown]
